FAERS Safety Report 24263658 (Version 2)
Quarter: 2024Q3

REPORT INFORMATION
  Report Type: Spontaneous
  Country: US (occurrence: None)
  Receive Date: 20240829
  Receipt Date: 20240904
  Transmission Date: 20241017
  Serious: Yes (Life-Threatening, Hospitalization, Disabling, Other)
  Sender: ASTRAZENECA
  Company Number: 2024A193975

PATIENT
  Sex: Male
  Weight: 70.3 kg

DRUGS (5)
  1. SEROQUEL [Suspect]
     Active Substance: QUETIAPINE FUMARATE
     Indication: Delusional disorder, unspecified type
     Route: 048
     Dates: start: 20060501, end: 20170101
  2. SEROQUEL [Suspect]
     Active Substance: QUETIAPINE FUMARATE
     Indication: Thinking abnormal
     Route: 048
     Dates: start: 20060501, end: 20170101
  3. SEROQUEL [Suspect]
     Active Substance: QUETIAPINE FUMARATE
     Indication: Cognitive disorder
     Route: 048
     Dates: start: 20060501, end: 20170101
  4. SEROQUEL [Suspect]
     Active Substance: QUETIAPINE FUMARATE
     Indication: Fear-related avoidance of activities
     Route: 048
     Dates: start: 20060501, end: 20170101
  5. SEROQUEL [Suspect]
     Active Substance: QUETIAPINE FUMARATE
     Indication: Economic problem
     Route: 048
     Dates: start: 20060501, end: 20170101

REACTIONS (4)
  - Insomnia [Not Recovered/Not Resolved]
  - Blindness [Not Recovered/Not Resolved]
  - Hypotension [Not Recovered/Not Resolved]
  - Fatigue [Not Recovered/Not Resolved]
